FAERS Safety Report 8245216-1 (Version None)
Quarter: 2012Q1

REPORT INFORMATION
  Report Type: 
  Country: None (occurrence: None)
  Receive Date: 20120329
  Receipt Date: 20120317
  Transmission Date: 20120608
  Serious: Yes (Other)
  Sender: FDA-Public Use
  Company Number: PHHY2012DE026837

PATIENT
  Sex: Female

DRUGS (3)
  1. CORTICOSTEROIDS [Concomitant]
     Dosage: UNK UKN, UNK
  2. CYCLOSPORINE [Suspect]
     Dosage: UNK UKN, UNK
  3. MYCOPHENOLIC ACID [Suspect]
     Indication: HEART TRANSPLANT
     Dosage: UNK UKN, UNK

REACTIONS (1)
  - RENAL IMPAIRMENT [None]
